FAERS Safety Report 17591290 (Version 2)
Quarter: 2020Q3

REPORT INFORMATION
  Report Type: Spontaneous
  Country: CA (occurrence: CA)
  Receive Date: 20200327
  Receipt Date: 20200812
  Transmission Date: 20201102
  Serious: Yes (Disabling, Other)
  Sender: FDA-Public Use
  Company Number: CA-AMGEN-CANSP2020048658

PATIENT
  Age: 55 Year
  Sex: Male
  Weight: 130 kg

DRUGS (2)
  1. DECADRON [Concomitant]
     Active Substance: DEXAMETHASONE
     Indication: ANGIOEDEMA
     Dosage: UNK
  2. MVASI [Suspect]
     Active Substance: BEVACIZUMAB-AWWB
     Indication: GLIOBLASTOMA
     Dosage: 1300 MILLIGRAM, Q2WK
     Route: 042
     Dates: start: 20200211, end: 20200303

REACTIONS (2)
  - Glioblastoma [Not Recovered/Not Resolved]
  - Drug ineffective [Not Recovered/Not Resolved]

NARRATIVE: CASE EVENT DATE: 20200310
